FAERS Safety Report 6392413-6 (Version None)
Quarter: 2009Q4

REPORT INFORMATION
  Report Type: 
  Country: None (occurrence: None)
  Receive Date: 20091007
  Receipt Date: 20090617
  Transmission Date: 20100525
  Serious: Yes (Other)
  Sender: FDA-Public Use
  Company Number: BR-PFIZER INC-2009260529

PATIENT
  Age: 64 Year

DRUGS (5)
  1. FRONTAL [Suspect]
     Indication: ANXIETY
     Dosage: 0.5 MG, 1X/DAY
     Route: 048
     Dates: start: 19990101
  2. FRONTAL [Suspect]
     Dosage: 0.5 MG, 2X/DAY
     Route: 048
  3. FRONTAL [Suspect]
     Dosage: UNK
     Route: 048
  4. FRONTAL [Suspect]
     Dosage: UNK
     Route: 048
  5. ATENOLOL W/CHLORTALIDONE [Concomitant]

REACTIONS (8)
  - APHTHOUS STOMATITIS [None]
  - BLOOD CHOLESTEROL INCREASED [None]
  - HYPERTENSION [None]
  - INFLUENZA [None]
  - INSOMNIA [None]
  - IRRITABILITY [None]
  - NAUSEA [None]
  - NERVOUSNESS [None]
